FAERS Safety Report 17150910 (Version 1)
Quarter: 2019Q4

REPORT INFORMATION
  Report Type: Spontaneous
  Country: US (occurrence: US)
  Receive Date: 20191212
  Receipt Date: 20191212
  Transmission Date: 20200122
  Serious: Yes (Other)
  Sender: FDA-Public Use
  Company Number: None

PATIENT
  Age: 40 Year
  Sex: Female
  Weight: 72 kg

DRUGS (1)
  1. ZYRTEC [Suspect]
     Active Substance: CETIRIZINE HYDROCHLORIDE
     Indication: SEASONAL ALLERGY
     Dates: start: 20100101, end: 20191212

REACTIONS (5)
  - Drug withdrawal syndrome [None]
  - Urticaria [None]
  - Erythema [None]
  - Mechanical urticaria [None]
  - Pruritus [None]

NARRATIVE: CASE EVENT DATE: 20181101
